FAERS Safety Report 7711963-0 (Version None)
Quarter: 2011Q3

REPORT INFORMATION
  Report Type: 
  Country: None (occurrence: None)
  Receive Date: 20110822
  Receipt Date: 20110809
  Transmission Date: 20111222
  Serious: Yes (Other)
  Sender: FDA-Public Use
  Company Number: 2011SP027373

PATIENT
  Age: 30 Year
  Sex: Female
  Weight: 92 kg

DRUGS (6)
  1. MORPHINE [Concomitant]
  2. RANITIDINE [Concomitant]
  3. NUVARING [Suspect]
     Indication: CONTRACEPTION
     Dosage: QM, VAG
     Route: 067
     Dates: start: 20100101, end: 20110301
  4. NUVARING [Suspect]
     Indication: CONTRACEPTION
     Dosage: QM, VAG
     Route: 067
     Dates: start: 20110516
  5. THIETHYLPERAZINE [Concomitant]
  6. PARGEVERINE HYDROCHLORIDE [Concomitant]

REACTIONS (10)
  - NASOPHARYNGITIS [None]
  - BLOOD PRESSURE INCREASED [None]
  - DRUG DOSE OMISSION [None]
  - INAPPROPRIATE SCHEDULE OF DRUG ADMINISTRATION [None]
  - CHOLECYSTITIS ACUTE [None]
  - CHOLELITHIASIS [None]
  - METRORRHAGIA [None]
  - WITHDRAWAL BLEED [None]
  - UNEVALUABLE EVENT [None]
  - INCORRECT DRUG ADMINISTRATION DURATION [None]
